FAERS Safety Report 9940604 (Version 2)
Quarter: 2014Q1

REPORT INFORMATION
  Report Type: Spontaneous
  Country: JP (occurrence: JP)
  Receive Date: 20140303
  Receipt Date: 20140305
  Transmission Date: 20141002
  Serious: Yes (Hospitalization)
  Sender: FDA-Public Use
  Company Number: JP-009507513-1403JPN000387

PATIENT
  Age: 23 Year
  Sex: Female

DRUGS (1)
  1. MARVELON [Suspect]
     Indication: MENSTRUATION IRREGULAR
     Dosage: UNK
     Route: 048

REACTIONS (1)
  - Influenza [Unknown]
